FAERS Safety Report 5023188-0 (Version None)
Quarter: 2006Q2

REPORT INFORMATION
  Report Type: 
  Country: None (occurrence: None)
  Receive Date: 20060428
  Receipt Date: 20060309
  Transmission Date: 20061013
  Serious: No
  Sender: FDA-Public Use
  Company Number: 012172

PATIENT
  Sex: Male

DRUGS (1)
  1. PRIALT [Suspect]
     Indication: PAIN
     Dosage: UNK UG, ONCE/HOUR, INTRATHECAL
     Route: 037

REACTIONS (3)
  - BLOOD CREATINE PHOSPHOKINASE INCREASED [None]
  - MUSCULAR WEAKNESS [None]
  - PAIN IN EXTREMITY [None]
